FAERS Safety Report 22249469 (Version 1)
Quarter: 2023Q2

REPORT INFORMATION
  Report Type: Spontaneous
  Country: US (occurrence: None)
  Receive Date: 20230424
  Receipt Date: 20230424
  Transmission Date: 20230721
  Serious: Yes (Hospitalization)
  Sender: FDA-Public Use
  Company Number: None

PATIENT
  Age: 68 Year
  Sex: Male
  Weight: 78.75 kg

DRUGS (2)
  1. AMOXICILLIN [Suspect]
     Active Substance: AMOXICILLIN
     Indication: Knee arthroplasty
     Dosage: OTHER QUANTITY : 4 CAPSULE(S);?FREQUENCY : DAILY;?
     Route: 048
     Dates: start: 20230411, end: 20230411
  2. AMOXICILLIN [Suspect]
     Active Substance: AMOXICILLIN
     Indication: Dental disorder prophylaxis

REACTIONS (4)
  - Pain in extremity [None]
  - Paraesthesia [None]
  - Prescribed overdose [None]
  - Nightmare [None]

NARRATIVE: CASE EVENT DATE: 20230411
